FAERS Safety Report 7987024-2 (Version None)
Quarter: 2011Q4

REPORT INFORMATION
  Report Type: 
  Country: None (occurrence: None)
  Receive Date: 20111216
  Receipt Date: 20110324
  Transmission Date: 20120403
  Serious: No
  Sender: FDA-Public Use
  Company Number: US-BRISTOL-MYERS SQUIBB COMPANY-15603236

PATIENT
  Age: 33 Year
  Sex: Female

DRUGS (3)
  1. ABILIFY [Suspect]
     Indication: BIPOLAR I DISORDER
     Dosage: INITAL DOSE 2MG, DOSE INCREASED TO 5MG THEN 10MG/DAY.
     Route: 048
     Dates: start: 20090101
  2. LAMICTAL [Concomitant]
  3. WELLBUTRIN XL [Suspect]

REACTIONS (2)
  - OCULOGYRIC CRISIS [None]
  - ANXIETY [None]
